FAERS Safety Report 5312465-1 (Version None)
Quarter: 2007Q2

REPORT INFORMATION
  Report Type: 
  Country: None (occurrence: None)
  Receive Date: 20070430
  Receipt Date: 20061130
  Transmission Date: 20071010
  Serious: No
  Sender: FDA-Public Use
  Company Number: 2006UW26859

PATIENT
  Age: 74 Year
  Sex: Female
  Weight: 43.1 kg

DRUGS (3)
  1. NEXIUM [Suspect]
     Indication: GASTROOESOPHAGEAL REFLUX DISEASE
     Route: 048
     Dates: start: 20061128
  2. TOPROL-XL [Concomitant]
     Route: 048
  3. ACTONEL [Concomitant]

REACTIONS (7)
  - ABDOMINAL PAIN UPPER [None]
  - ANAL DISCOMFORT [None]
  - EYE IRRITATION [None]
  - HEADACHE [None]
  - PHARYNGOLARYNGEAL PAIN [None]
  - SUNBURN [None]
  - VAGINAL BURNING SENSATION [None]
